FAERS Safety Report 12954233 (Version 3)
Quarter: 2017Q1

REPORT INFORMATION
  Report Type: Spontaneous
  Country: DE (occurrence: DE)
  Receive Date: 20161118
  Receipt Date: 20170125
  Transmission Date: 20170428
  Serious: Yes (Other)
  Sender: FDA-Public Use
  Company Number: DE-009507513-1610DEU013353

PATIENT
  Age: 40 Year
  Sex: Male

DRUGS (1)
  1. PROPECIA [Suspect]
     Active Substance: FINASTERIDE
     Indication: ANDROGENETIC ALOPECIA
     Dosage: UNK (THERAPY STARTED  5-8 YEARS AGO)
     Route: 048
     Dates: start: 2003, end: 201611

REACTIONS (5)
  - Osteonecrosis [Unknown]
  - Emotional disorder [Unknown]
  - Mental status changes [Unknown]
  - Gamma-glutamyltransferase increased [Unknown]
  - Alanine aminotransferase increased [Unknown]

NARRATIVE: CASE EVENT DATE: 2016
